FAERS Safety Report 7543910-9 (Version None)
Quarter: 2011Q2

REPORT INFORMATION
  Report Type: 
  Country: None (occurrence: None)
  Receive Date: 20110613
  Receipt Date: 20110609
  Transmission Date: 20111010
  Serious: Yes (Other)
  Sender: FDA-Public Use
  Company Number: CA-ABBOTT-11P-028-0731375-00

PATIENT
  Sex: Male

DRUGS (1)
  1. LUPRON DEPOT [Suspect]
     Indication: PROSTATE CANCER

REACTIONS (1)
  - CHEST X-RAY ABNORMAL [None]
